FAERS Safety Report 9962307 (Version 1)
Quarter: 2014Q1

REPORT INFORMATION
  Report Type: Report from Study
  Country: US (occurrence: US)
  Receive Date: 20140305
  Receipt Date: 20140305
  Transmission Date: 20141002
  Serious: No
  Sender: FDA-Public Use
  Company Number: US-ABBVIE-13P-163-1116164-00

PATIENT
  Age: 72 Year
  Sex: Male

DRUGS (12)
  1. HUMIRA [Suspect]
     Indication: CROHN^S DISEASE
     Dates: start: 20130520
  2. METOFORMIN [Concomitant]
     Indication: PRODUCT USED FOR UNKNOWN INDICATION
  3. LANTUS [Concomitant]
     Indication: DIABETES MELLITUS
     Dosage: 32 UNITS IN THE AM
  4. LANTUS [Concomitant]
     Dosage: 40 UNITS AT NIGHT
  5. ONGLYZA [Concomitant]
     Indication: DIABETES MELLITUS
  6. LOVASTATIN [Concomitant]
     Indication: BLOOD CHOLESTEROL INCREASED
  7. LISINOPRIL [Concomitant]
     Indication: HYPERTENSION
  8. NIFEDIPINE [Concomitant]
     Indication: PRODUCT USED FOR UNKNOWN INDICATION
  9. ZANTAC [Concomitant]
     Indication: GASTROOESOPHAGEAL REFLUX DISEASE
     Dosage: 150 MG DAILY
  10. NEXIUM [Concomitant]
     Indication: GASTROOESOPHAGEAL REFLUX DISEASE
     Dosage: DAILY
  11. HYDROCORTISONE [Concomitant]
     Indication: CROHN^S DISEASE
     Dosage: AT NIGHT
  12. CALCIUM [Concomitant]
     Indication: MINERAL SUPPLEMENTATION
     Dosage: 600 MG 2 A DAY

REACTIONS (2)
  - Muscle spasms [Not Recovered/Not Resolved]
  - Rash macular [Unknown]
